FAERS Safety Report 8544109-X (Version None)
Quarter: 2012Q3

REPORT INFORMATION
  Report Type: 
  Country: None (occurrence: None)
  Receive Date: 20120727
  Receipt Date: 20120724
  Transmission Date: 20120928
  Serious: Yes (Other)
  Sender: FDA-Public Use
  Company Number: BR-PFIZER INC-2009190325

PATIENT
  Age: 31 Year
  Sex: Male
  Weight: 72 kg

DRUGS (4)
  1. GEODON [Suspect]
     Indication: SCHIZOPHRENIA
     Dosage: 80 MG, 2X/DAY
     Route: 048
     Dates: start: 20040101
  2. FONERGIN [Concomitant]
     Indication: PHARYNGITIS
     Dosage: UNK, OCCASIONALLY
  3. GEODON [Suspect]
     Dosage: ONE TABLET DAILY
     Route: 048
  4. GEODON [Suspect]
     Indication: SCHIZOPHRENIA, PARANOID TYPE
     Dosage: ONE TABLET EACH TWELVE HOURS
     Route: 048

REACTIONS (11)
  - MALAISE [None]
  - DELIRIUM [None]
  - ERECTION INCREASED [None]
  - SCHIZOPHRENIA [None]
  - BLOOD PRESSURE DECREASED [None]
  - NAUSEA [None]
  - DIZZINESS [None]
  - SALIVARY HYPERSECRETION [None]
  - MEDICATION ERROR [None]
  - SOMNOLENCE [None]
  - INSOMNIA [None]
